FAERS Safety Report 7506965-3 (Version None)
Quarter: 2011Q2

REPORT INFORMATION
  Report Type: 
  Country: None (occurrence: None)
  Receive Date: 20110526
  Receipt Date: 20110516
  Transmission Date: 20111010
  Serious: Yes (Other)
  Sender: FDA-Public Use
  Company Number: FI-UCBSA-032187

PATIENT
  Age: 37 Year
  Sex: Female

DRUGS (1)
  1. XYZAL [Suspect]
     Indication: HYPERSENSITIVITY
     Route: 048
     Dates: start: 20110329, end: 20110422

REACTIONS (8)
  - DYSPNOEA [None]
  - DYSSTASIA [None]
  - INSOMNIA [None]
  - ARRHYTHMIA [None]
  - PALPITATIONS [None]
  - FATIGUE [None]
  - BLOOD PRESSURE INCREASED [None]
  - NAUSEA [None]
